FAERS Safety Report 8369723-6 (Version None)
Quarter: 2012Q2

REPORT INFORMATION
  Report Type: 
  Country: None (occurrence: None)
  Receive Date: 20120518
  Receipt Date: 20120510
  Transmission Date: 20120825
  Serious: Yes (Other)
  Sender: FDA-Public Use
  Company Number: PHEH2012US009884

PATIENT
  Sex: Female

DRUGS (6)
  1. AMLODIPINE BESYLATE [Concomitant]
     Dosage: 10 MG, UNK
  2. ASPIRIN [Concomitant]
     Dosage: 325 MG, UNK
  3. SIMVASTATIN [Concomitant]
     Dosage: 80 MG, UNK
  4. TEKTURNA [Suspect]
     Dosage: 300 MG, QD
  5. LISINOPRIL [Concomitant]
     Dosage: 20 MG, UNK
  6. LISINOPRIL AND HYDROCHLOROTHIAZIDE [Concomitant]
     Dosage: 25 MG, UNK

REACTIONS (2)
  - BLOOD PRESSURE INADEQUATELY CONTROLLED [None]
  - TRANSIENT ISCHAEMIC ATTACK [None]
